FAERS Safety Report 6994155-2 (Version None)
Quarter: 2010Q3

REPORT INFORMATION
  Report Type: 
  Country: None (occurrence: None)
  Receive Date: 20100917
  Receipt Date: 20090820
  Transmission Date: 20110219
  Serious: Yes (Other)
  Sender: FDA-Public Use
  Company Number: US-ASTRAZENECA-2009SE09451

PATIENT
  Age: 30 Year
  Sex: Female

DRUGS (3)
  1. SEROQUEL [Suspect]
     Indication: AFFECTIVE DISORDER
     Route: 048
     Dates: start: 20090401, end: 20090101
  2. SEROQUEL [Suspect]
     Route: 048
     Dates: start: 20090101, end: 20090101
  3. SEROQUEL [Suspect]
     Route: 048
     Dates: start: 20090701

REACTIONS (1)
  - SINUS TACHYCARDIA [None]
